FAERS Safety Report 14801316 (Version 4)
Quarter: 2018Q2

REPORT INFORMATION
  Report Type: Spontaneous
  Country: FR (occurrence: FR)
  Receive Date: 20180424
  Receipt Date: 20180627
  Transmission Date: 20180711
  Serious: Yes (Death)
  Sender: FDA-Public Use
  Company Number: FR-MYLANLABS-2018M1024982

PATIENT
  Age: 68 Year
  Sex: Male

DRUGS (20)
  1. LEVOFLOXACIN. [Suspect]
     Active Substance: LEVOFLOXACIN
     Indication: OSTEITIS
     Dosage: 2 DF, QD (SCORED TABLET)
     Route: 048
     Dates: start: 20171013, end: 20171025
  2. HYDROXOCOBALAMINE [Suspect]
     Active Substance: HYDROXOCOBALAMIN
     Indication: HYPOVITAMINOSIS
     Dosage: 0.07 DF, Q2W
     Route: 048
     Dates: end: 20171024
  3. PREVISCAN                          /00261401/ [Suspect]
     Active Substance: PENTOXIFYLLINE
     Indication: ATRIAL FIBRILLATION
     Dosage: 25 MG, QD (SCORED TABLET)
     Route: 048
     Dates: end: 20171024
  4. PANTOPRAZOLE [Concomitant]
     Active Substance: PANTOPRAZOLE
     Indication: PRODUCT USED FOR UNKNOWN INDICATION
     Dosage: UNK
  5. NOVORAPID [Concomitant]
     Active Substance: INSULIN ASPART
     Indication: PRODUCT USED FOR UNKNOWN INDICATION
     Dosage: UNK
  6. RESIKALI [Concomitant]
     Active Substance: CALCIUM POLYSTYRENE SULFONATE
     Indication: PRODUCT USED FOR UNKNOWN INDICATION
     Dosage: UNK
  7. NOVOMIX [Suspect]
     Active Substance: INSULIN ASPART
     Indication: DIABETES MELLITUS
     Dosage: NOVOMIX 30 100 U/ML, SUSPENSION FOR INJECTION IN A VIAL
     Route: 058
     Dates: end: 20171024
  8. FLAGYL [Concomitant]
     Active Substance: METRONIDAZOLE\METRONIDAZOLE HYDROCHLORIDE
     Indication: PRODUCT USED FOR UNKNOWN INDICATION
     Dosage: UNK
  9. SIMVASTATIN. [Suspect]
     Active Substance: SIMVASTATIN
     Indication: CARDIOVASCULAR EVENT PROPHYLAXIS
     Dosage: 20 MG, QD
     Route: 048
     Dates: end: 20171024
  10. NOVONORM [Suspect]
     Active Substance: REPAGLINIDE
     Indication: DIABETES MELLITUS
     Dosage: 3 MG, QD
     Route: 048
     Dates: end: 20171024
  11. VICTOZA [Suspect]
     Active Substance: LIRAGLUTIDE
     Indication: DIABETES MELLITUS
     Dosage: 0.14 DF, QW (PRE-FILLED INJECTOR PEN)
     Route: 058
     Dates: end: 20171024
  12. BACTRIM [Suspect]
     Active Substance: SULFAMETHOXAZOLE\TRIMETHOPRIM
     Indication: OSTEITIS
     Dosage: 1 DF, QD, HIGH DOSE
     Route: 048
     Dates: start: 20171016, end: 20171025
  13. HYDROSOL POLYVITAMINE B.O.N. [Suspect]
     Active Substance: VITAMINS
     Indication: HYPOVITAMINOSIS
     Dosage: 25 GTT, QD
     Route: 048
     Dates: end: 20171024
  14. FUROSEMIDE. [Concomitant]
     Active Substance: FUROSEMIDE
     Indication: PRODUCT USED FOR UNKNOWN INDICATION
     Dosage: UNK
  15. HEPARIN [Concomitant]
     Active Substance: HEPARIN SODIUM
     Indication: PRODUCT USED FOR UNKNOWN INDICATION
     Dosage: UNK
  16. ATROVENT [Suspect]
     Active Substance: IPRATROPIUM BROMIDE
     Indication: CHRONIC OBSTRUCTIVE PULMONARY DISEASE
     Dosage: 1 DF, QD
     Route: 055
     Dates: end: 20171024
  17. SPECIAFOLDINE [Suspect]
     Active Substance: FOLIC ACID
     Indication: HYPOVITAMINOSIS
     Dosage: 1 DF, QD
     Route: 048
     Dates: end: 20171025
  18. PARACETAMOL [Concomitant]
     Active Substance: ACETAMINOPHEN
     Indication: PRODUCT USED FOR UNKNOWN INDICATION
     Dosage: UNK
  19. BRICANYL [Suspect]
     Active Substance: TERBUTALINE SULFATE
     Indication: CHRONIC OBSTRUCTIVE PULMONARY DISEASE
     Dosage: 1 DF, QD
     Route: 055
     Dates: end: 20171024
  20. SILODYX [Suspect]
     Active Substance: SILODOSIN
     Indication: BENIGN PROSTATIC HYPERPLASIA
     Dosage: 1 DF, QD
     Route: 048
     Dates: end: 20171024

REACTIONS (1)
  - Acute kidney injury [Fatal]

NARRATIVE: CASE EVENT DATE: 20171023
